FAERS Safety Report 7707252-0 (Version None)
Quarter: 2011Q3

REPORT INFORMATION
  Report Type: 
  Country: None (occurrence: None)
  Receive Date: 20110824
  Receipt Date: 20110812
  Transmission Date: 20111222
  Serious: Yes (Other)
  Sender: FDA-Public Use
  Company Number: PHEH2011US01329

PATIENT
  Sex: Female
  Weight: 49.887 kg

DRUGS (8)
  1. PARADEX [Concomitant]
     Dosage: UNK UKN, UNK
  2. XANAX [Concomitant]
     Dosage: UNK UKN, UNK
  3. POTASSIUM [Concomitant]
     Dosage: UNK UKN, UNK
  4. ASPIRIN [Concomitant]
     Dosage: 81 MG, UNK
  5. LASIX [Concomitant]
     Dosage: 20 MG, UNK
  6. METOPROLOL [Concomitant]
     Dosage: 25 MG, UNK
  7. EXJADE [Suspect]
     Dosage: 500 MG, BID
     Route: 048
  8. CARDIZEM [Concomitant]
     Dosage: 120 MG, UNK

REACTIONS (4)
  - CARDIOVASCULAR DISORDER [None]
  - ANAEMIA [None]
  - THROMBOSIS [None]
  - POST PROCEDURAL HAEMORRHAGE [None]
